FAERS Safety Report 12680031 (Version 1)
Quarter: 2016Q3

REPORT INFORMATION
  Report Type: Spontaneous
  Country: US (occurrence: None)
  Receive Date: 20160823
  Receipt Date: 20160823
  Transmission Date: 20161109
  Serious: Yes (Death)
  Sender: FDA-Public Use
  Company Number: None

PATIENT
  Age: 79 Year
  Sex: Male

DRUGS (14)
  1. IBUPROFEN. [Concomitant]
     Active Substance: IBUPROFEN
  2. OMEPRAZOLE. [Concomitant]
     Active Substance: OMEPRAZOLE
  3. CETIRIZINE [Concomitant]
     Active Substance: CETIRIZINE HYDROCHLORIDE
  4. CYCLOBENZAPRINE [Concomitant]
     Active Substance: CYCLOBENZAPRINE
  5. PEMBROLIZUMAB. [Concomitant]
     Active Substance: PEMBROLIZUMAB
  6. INSULIN [Concomitant]
     Active Substance: INSULIN NOS
  7. LEVOTHYROXINE. [Concomitant]
     Active Substance: LEVOTHYROXINE
  8. ONDANSETRON [Concomitant]
     Active Substance: ONDANSETRON
  9. PREDNISONE. [Concomitant]
     Active Substance: PREDNISONE
  10. TIMOLOL OPTHALMIC [Concomitant]
  11. TRAVOPROST [Concomitant]
     Active Substance: TRAVOPROST
  12. METRONIDAZOLE. [Concomitant]
     Active Substance: METRONIDAZOLE
  13. OXYCODONE [Concomitant]
     Active Substance: OXYCODONE
  14. TALIMOGENE LAHERPAREPVEC [Suspect]
     Active Substance: TALIMOGENE LAHERPAREPVEC
     Indication: MALIGNANT MELANOMA
     Route: 042
     Dates: start: 20160630, end: 20160721

REACTIONS (1)
  - Death [None]

NARRATIVE: CASE EVENT DATE: 20160721
